FAERS Safety Report 20694605 (Version 2)
Quarter: 2022Q2

REPORT INFORMATION
  Report Type: Spontaneous
  Country: US (occurrence: US)
  Receive Date: 20220411
  Receipt Date: 20220511
  Transmission Date: 20220721
  Serious: No
  Sender: FDA-Public Use
  Company Number: US-GSKCCFUS-Case-01341264_AE-77838

PATIENT
  Sex: Male

DRUGS (1)
  1. BENLYSTA [Suspect]
     Active Substance: BELIMUMAB
     Indication: Product used for unknown indication
     Dosage: UNK UNK, WE
     Dates: start: 20220403

REACTIONS (3)
  - Exposure via skin contact [Unknown]
  - Underdose [Unknown]
  - Product complaint [Unknown]
